FAERS Safety Report 14165822 (Version 1)
Quarter: 2017Q4

REPORT INFORMATION
  Report Type: Spontaneous
  Country: DK (occurrence: DK)
  Receive Date: 20171107
  Receipt Date: 20171107
  Transmission Date: 20180321
  Serious: Yes (Hospitalization)
  Sender: FDA-Public Use
  Company Number: DK-TEVA-820484ROM

PATIENT
  Age: 41 Year
  Sex: Female
  Weight: 72 kg

DRUGS (5)
  1. GABARATIO [Suspect]
     Active Substance: GABAPENTIN
     Indication: NEURALGIA
     Dosage: 900 MILLIGRAM DAILY; DOSAGE: 1 CAPSULE X 3, STRENGHT: 300 MG
     Route: 048
     Dates: start: 20171004, end: 20171010
  2. LOSARTAN. [Concomitant]
     Active Substance: LOSARTAN
     Indication: HYPERTENSION
     Dosage: 50 MILLIGRAM DAILY;
     Route: 048
     Dates: start: 20151201
  3. NASONEX [Concomitant]
     Active Substance: MOMETASONE FUROATE
     Indication: RHINORRHOEA
     Dosage: DOSAGE: 2-4 PUFFS IN EACH NOSTRILS DAILY, STRENGHT: 50 MICROGRAM/DOSAGE
     Route: 045
     Dates: start: 20150218
  4. PANODIL [Concomitant]
     Active Substance: ACETAMINOPHEN
     Indication: PAIN
     Dosage: DOSAGE: 2 TABLETS AS NEEDED, MAXIMUM 4 TIMES DAILY, STRENGTH: 500 MG.
     Route: 048
     Dates: start: 20170824
  5. TRADOLAN [Concomitant]
     Active Substance: TRAMADOL
     Indication: PAIN
     Dosage: 200 MILLIGRAM DAILY; 1 TABLET MORNING AND EVENING, STRENGHT: 100 MG
     Route: 048
     Dates: start: 20170824, end: 20171016

REACTIONS (4)
  - Dysaesthesia [Recovering/Resolving]
  - Ataxia [Recovering/Resolving]
  - Aphasia [Recovering/Resolving]
  - Dizziness [Recovering/Resolving]

NARRATIVE: CASE EVENT DATE: 20171004
